FAERS Safety Report 9246563 (Version 1)
Quarter: 2013Q2

REPORT INFORMATION
  Report Type: Report from Study
  Country: US (occurrence: US)
  Receive Date: 20130422
  Receipt Date: 20130422
  Transmission Date: 20140414
  Serious: No
  Sender: FDA-Public Use
  Company Number: US-ABBOTT-12P-163-0990316-00

PATIENT
  Age: 7 Year
  Sex: Female
  Weight: 31.33 kg

DRUGS (4)
  1. LUPRON DEPOT-PED [Suspect]
     Indication: PRECOCIOUS PUBERTY
     Route: 030
     Dates: start: 20100201
  2. PULMICORT [Concomitant]
     Indication: SEASONAL ALLERGY
     Dosage: TWICE DAILY, AS NEEDED
  3. ALBUTEROL [Concomitant]
     Indication: SEASONAL ALLERGY
     Dosage: TWICE DAILY, AS NEEDED
  4. CHILDREN^S ZYRTEC [Concomitant]
     Indication: SEASONAL ALLERGY
     Dosage: ONCE DAILY, AS NEEDED (LAST DOSE TAKEN TWO WEEKS AGO)

REACTIONS (6)
  - Irritability [Not Recovered/Not Resolved]
  - Mood altered [Not Recovered/Not Resolved]
  - Crying [Not Recovered/Not Resolved]
  - Vision blurred [Not Recovered/Not Resolved]
  - Headache [Not Recovered/Not Resolved]
  - Astigmatism [Not Recovered/Not Resolved]
